FAERS Safety Report 8831538 (Version 1)
Quarter: 2012Q4

REPORT INFORMATION
  Report Type: Report from Study
  Country: GB (occurrence: GB)
  Receive Date: 20121008
  Receipt Date: 20121008
  Transmission Date: 20130627
  Serious: Yes (Death, Hospitalization, Other)
  Sender: FDA-Public Use
  Company Number: GB-GLAXOSMITHKLINE-A0882225A

PATIENT
  Age: 65 Year
  Sex: Male
  Weight: 75.3 kg

DRUGS (4)
  1. OFATUMUMAB [Suspect]
     Indication: CHRONIC LYMPHOCYTIC LEUKAEMIA
     Dosage: 4300MG cumulative dose
     Route: 042
     Dates: start: 20100902, end: 20100916
  2. PARACETAMOL [Concomitant]
     Dosage: 3000MG cumulative dose
     Dates: start: 20100902
  3. CHLORPHENIRAMINE [Concomitant]
     Dosage: 30MG cumulative dose
     Dates: start: 20100902
  4. DEXAMETHASONE [Concomitant]
     Dosage: 37.5MG cumulative dose
     Dates: start: 20100902

REACTIONS (1)
  - Melanoma recurrent [Fatal]
